FAERS Safety Report 18600771 (Version 1)
Quarter: 2020Q4

REPORT INFORMATION
  Report Type: Spontaneous
  Country: IT (occurrence: IT)
  Receive Date: 20201210
  Receipt Date: 20201210
  Transmission Date: 20210114
  Serious: Yes (Other)
  Sender: FDA-Public Use
  Company Number: IT-SAMSUNG BIOEPIS-SB-2020-36590

PATIENT
  Age: 44 Year
  Sex: Female

DRUGS (3)
  1. REUMAFLEX [Concomitant]
     Indication: SPONDYLITIS
     Route: 058
     Dates: start: 20170501
  2. IMRALDI [Suspect]
     Active Substance: ADALIMUMAB
     Indication: AXIAL SPONDYLOARTHRITIS
     Route: 058
     Dates: start: 20200615
  3. URBASON [Concomitant]
     Active Substance: METHYLPREDNISOLONE
     Indication: SPONDYLITIS
     Route: 048
     Dates: start: 20170101

REACTIONS (5)
  - Rheumatoid arthritis [Not Recovered/Not Resolved]
  - Product substitution issue [Unknown]
  - Arthritis [Not Recovered/Not Resolved]
  - Somatic dysfunction [Not Recovered/Not Resolved]
  - Erectile dysfunction [Not Recovered/Not Resolved]

NARRATIVE: CASE EVENT DATE: 20200630
